FAERS Safety Report 5763264-8 (Version None)
Quarter: 2008Q2

REPORT INFORMATION
  Report Type: 
  Country: None (occurrence: None)
  Receive Date: 20080604
  Receipt Date: 20080604
  Transmission Date: 20081010
  Serious: Yes (Other)
  Sender: FDA-Public Use
  Company Number: None

PATIENT
  Sex: Female
  Weight: 83.9154 kg

DRUGS (2)
  1. PAXIL [Suspect]
     Indication: ANXIETY DISORDER
     Dosage: 1 TABLET DAILY PO
     Route: 048
     Dates: start: 20040206, end: 20080420
  2. PAXIL [Suspect]
     Indication: PANIC ATTACK
     Dosage: 1 TABLET DAILY PO
     Route: 048
     Dates: start: 20040206, end: 20080420

REACTIONS (24)
  - ANXIETY [None]
  - BLOOD PRESSURE INCREASED [None]
  - CRYING [None]
  - DIZZINESS [None]
  - DRUG INEFFECTIVE [None]
  - DRUG WITHDRAWAL SYNDROME [None]
  - FLASHBACK [None]
  - HALLUCINATION [None]
  - HEADACHE [None]
  - HYPOAESTHESIA [None]
  - IMPAIRED DRIVING ABILITY [None]
  - IMPAIRED WORK ABILITY [None]
  - INSOMNIA [None]
  - IRRITABILITY [None]
  - MOOD SWINGS [None]
  - NAUSEA [None]
  - PALPITATIONS [None]
  - PANIC REACTION [None]
  - PARAESTHESIA [None]
  - PRURITUS [None]
  - RESTLESS LEGS SYNDROME [None]
  - SUICIDAL IDEATION [None]
  - TINNITUS [None]
  - VERTIGO [None]
